FAERS Safety Report 16503968 (Version 1)
Quarter: 2019Q3

REPORT INFORMATION
  Report Type: Report from Study
  Country: AR (occurrence: AR)
  Receive Date: 20190701
  Receipt Date: 20190701
  Transmission Date: 20191004
  Serious: Yes (Other)
  Sender: FDA-Public Use
  Company Number: PHHY2018AR016108

PATIENT
  Age: 47 Year
  Sex: Male

DRUGS (8)
  1. TRILEPTAL [Suspect]
     Active Substance: OXCARBAZEPINE
     Indication: SEIZURE
     Dosage: 5 DF, QD
     Route: 065
  2. TRILEPTAL [Suspect]
     Active Substance: OXCARBAZEPINE
     Dosage: 5 DF , QD
     Route: 065
  3. CARBAMAZEPINE. [Suspect]
     Active Substance: CARBAMAZEPINE
     Indication: EPILEPSY
     Dosage: UNK
     Route: 065
     Dates: start: 2007, end: 2015
  4. TRILEPTAL [Suspect]
     Active Substance: OXCARBAZEPINE
     Indication: EPILEPSY
     Dosage: 3 DF, QD
     Route: 065
  5. TRILEPTAL [Suspect]
     Active Substance: OXCARBAZEPINE
     Dosage: 4 DF, QD
     Route: 065
     Dates: start: 2015
  6. CLONAZEPAM. [Suspect]
     Active Substance: CLONAZEPAM
     Indication: PRODUCT USED FOR UNKNOWN INDICATION
     Dosage: 1 MG, Q12H
     Route: 065
  7. TRILEPTAL [Suspect]
     Active Substance: OXCARBAZEPINE
     Dosage: 4 DF, QD
     Route: 065
  8. PREGABALIN. [Concomitant]
     Active Substance: PREGABALIN
     Indication: PRODUCT USED FOR UNKNOWN INDICATION
     Dosage: 150 MG, BID
     Route: 065

REACTIONS (17)
  - Facial bones fracture [Recovering/Resolving]
  - Anxiety [Unknown]
  - Contusion [Unknown]
  - Insomnia [Recovered/Resolved]
  - Dizziness [Unknown]
  - Epistaxis [Recovering/Resolving]
  - Memory impairment [Recovered/Resolved]
  - Feeling abnormal [Unknown]
  - Fall [Recovering/Resolving]
  - Retching [Recovered/Resolved]
  - Seizure [Unknown]
  - Epilepsy [Recovering/Resolving]
  - Loss of consciousness [Recovered/Resolved]
  - Aura [Unknown]
  - Tooth fracture [Recovering/Resolving]
  - Somnolence [Unknown]
  - Product prescribing error [Unknown]

NARRATIVE: CASE EVENT DATE: 201712
